FAERS Safety Report 22256919 (Version 4)
Quarter: 2025Q2

REPORT INFORMATION
  Report Type: Spontaneous
  Country: US (occurrence: US)
  Receive Date: 20230426
  Receipt Date: 20250424
  Transmission Date: 20250716
  Serious: Yes (Hospitalization, Other)
  Sender: PFIZER
  Company Number: US-PFIZER INC-202300165795

PATIENT
  Age: 64 Year
  Sex: Female
  Weight: 77.11 kg

DRUGS (24)
  1. XELJANZ XR [Suspect]
     Active Substance: TOFACITINIB CITRATE
     Indication: Rheumatoid arthritis
     Dosage: 11 MG, DAILY
     Dates: start: 202211, end: 202312
  2. XELJANZ XR [Suspect]
     Active Substance: TOFACITINIB CITRATE
     Dosage: 11 MG, 1X/DAY
  3. PNEUMOVAX 23 [Concomitant]
     Active Substance: PNEUMOCOCCAL VACCINE, POLYVALENT 23
  4. PNEUMOVAX 23 [Concomitant]
     Active Substance: PNEUMOCOCCAL VACCINE, POLYVALENT 23
  5. PREDNISONE [Concomitant]
     Active Substance: PREDNISONE
     Dates: start: 2017
  6. LORAZEPAM [Concomitant]
     Active Substance: LORAZEPAM
     Dates: start: 2020
  7. LEVOTHYROXINE [Concomitant]
     Active Substance: LEVOTHYROXINE
     Dates: start: 2003
  8. LOSARTAN POTASSIUM [Concomitant]
     Active Substance: LOSARTAN POTASSIUM
     Dates: start: 2020
  9. DULOXETINE HYDROCHLORIDE [Concomitant]
     Active Substance: DULOXETINE HYDROCHLORIDE
     Dates: start: 2018
  10. TRAZODONE HCL [Concomitant]
     Active Substance: TRAZODONE HYDROCHLORIDE
     Dates: start: 2018
  11. HYDROCHLOROTHIAZIDE [Concomitant]
     Active Substance: HYDROCHLOROTHIAZIDE
     Dates: start: 2020
  12. MINERALS\VITAMINS [Concomitant]
     Active Substance: MINERALS\VITAMINS
     Dates: start: 2021
  13. AMLODIPINE BESYLATE [Concomitant]
     Active Substance: AMLODIPINE BESYLATE
     Dates: start: 2020
  14. FAMOTIDINE [Concomitant]
     Active Substance: FAMOTIDINE
     Dates: start: 2018
  15. METOPROLOL SUCCINATE [Concomitant]
     Active Substance: METOPROLOL SUCCINATE
     Dates: start: 2020
  16. FISH OIL [Concomitant]
     Active Substance: FISH OIL
     Dates: start: 2018
  17. ALBUTEROL SULFATE [Concomitant]
     Active Substance: ALBUTEROL SULFATE
  18. VITAMIN D3 [Concomitant]
     Active Substance: CHOLECALCIFEROL
     Dates: start: 2009
  19. QVAR REDIHALER [Concomitant]
     Active Substance: BECLOMETHASONE DIPROPIONATE
     Dates: start: 2009
  20. PREGABALIN [Concomitant]
     Active Substance: PREGABALIN
     Dates: start: 2020
  21. POTASSIUM CHLORIDE [Concomitant]
     Active Substance: POTASSIUM CHLORIDE
     Dates: start: 2020
  22. HYDROXYCHLOROQUINE SULFATE [Concomitant]
     Active Substance: HYDROXYCHLOROQUINE SULFATE
     Dates: start: 2021
  23. UBRELVY [Concomitant]
     Active Substance: UBROGEPANT
     Dates: start: 202303
  24. METHOTREXATE [Concomitant]
     Active Substance: METHOTREXATE
     Dates: start: 202303

REACTIONS (10)
  - Knee arthroplasty [Unknown]
  - Rheumatoid arthritis [Recovered/Resolved]
  - Loss of personal independence in daily activities [Recovered/Resolved]
  - Carpal tunnel syndrome [Recovered/Resolved]
  - Respiratory tract infection [Recovered/Resolved]
  - Blood cholesterol increased [Recovered/Resolved]
  - Upper respiratory tract infection [Recovered/Resolved]
  - COVID-19 [Recovered/Resolved]
  - Urinary tract infection [Recovered/Resolved]
  - Liver function test increased [Unknown]

NARRATIVE: CASE EVENT DATE: 20221101
